FAERS Safety Report 10893711 (Version 4)
Quarter: 2016Q2

REPORT INFORMATION
  Report Type: Report from Study
  Country: HK (occurrence: HK)
  Receive Date: 20150306
  Receipt Date: 20160513
  Transmission Date: 20160815
  Serious: Yes (Hospitalization)
  Sender: FDA-Public Use
  Company Number: HK-ABBVIE-15P-075-1350848-00

PATIENT
  Age: 70 Year
  Sex: Female

DRUGS (21)
  1. CEFTRIAXONE DISODIUM [Concomitant]
     Active Substance: CEFTRIAXONE
     Indication: PRODUCT USED FOR UNKNOWN INDICATION
     Route: 040
     Dates: start: 20150223
  2. HUMULIN NOS [Concomitant]
     Active Substance: INSULIN HUMAN
     Dosage: 44 UNITS IN MORNING, 34 UNITS IN AFTERNOON
     Route: 058
     Dates: start: 20130327, end: 20140513
  3. GLYCERYL TRINITRATE [Concomitant]
     Active Substance: NITROGLYCERIN
     Indication: PRODUCT USED FOR UNKNOWN INDICATION
     Dosage: ONCE WHEN NECESSARY
     Route: 060
     Dates: start: 20130327
  4. ADALAT [Concomitant]
     Active Substance: NIFEDIPINE
     Indication: HYPERTENSION
     Route: 048
     Dates: start: 20130327
  5. ANIDULAFUNGIN [Concomitant]
     Active Substance: ANIDULAFUNGIN
     Dosage: OVER 90 MINUTES
     Route: 042
     Dates: start: 20150224
  6. PANTOPRAZOLE [Concomitant]
     Active Substance: PANTOPRAZOLE SODIUM
     Indication: PRODUCT USED FOR UNKNOWN INDICATION
     Route: 042
     Dates: start: 20150222, end: 20150225
  7. PANTOPRAZOLE [Concomitant]
     Active Substance: PANTOPRAZOLE SODIUM
     Route: 042
     Dates: start: 20150226
  8. HUMULIN NOS [Concomitant]
     Active Substance: INSULIN HUMAN
     Dosage: 44 UNITS IN MORNING, 36 UNITS IN AFTERNOON
     Route: 058
     Dates: start: 20140514, end: 20150222
  9. ACTRAPID [Concomitant]
     Active Substance: INSULIN HUMAN
     Indication: TYPE 2 DIABETES MELLITUS
     Dosage: 4 UNITS 3 TIMES A DAY AND 4 UNITS AT NIGHT
     Route: 058
     Dates: start: 20150224
  10. ASPIRIN. [Concomitant]
     Active Substance: ASPIRIN
     Indication: PRODUCT USED FOR UNKNOWN INDICATION
     Dates: start: 200103
  11. FLEET ENEMA [Concomitant]
     Active Substance: SODIUM PHOSPHATE, DIBASIC\SODIUM PHOSPHATE, MONOBASIC
     Indication: PRODUCT USED FOR UNKNOWN INDICATION
     Dosage: 1 BOTTLE WHEN NECESSARY
     Route: 054
     Dates: start: 20150224
  12. POTASSIUM CHLORIDE. [Concomitant]
     Active Substance: POTASSIUM CHLORIDE
     Indication: PRODUCT USED FOR UNKNOWN INDICATION
     Dosage: STAT FOR ONE DOSE
     Route: 048
     Dates: start: 20150225, end: 20150225
  13. DASABUVIR [Suspect]
     Active Substance: DASABUVIR
     Indication: HEPATITIS C
     Route: 048
     Dates: start: 20150217, end: 20150222
  14. SODIUM CHLORIDE. [Concomitant]
     Active Substance: SODIUM CHLORIDE
     Indication: PRODUCT USED FOR UNKNOWN INDICATION
     Route: 048
     Dates: start: 20150225
  15. OMBITASVIR/PARITAPREVIR/RITONAVIR [Suspect]
     Active Substance: OMBITASVIR\PARITAPREVIR\RITONAVIR
     Indication: HEPATITIS C
     Dosage: 150/100/25 MG IN 1D
     Route: 048
     Dates: start: 20150217, end: 20150222
  16. ANIDULAFUNGIN [Concomitant]
     Active Substance: ANIDULAFUNGIN
     Indication: PRODUCT USED FOR UNKNOWN INDICATION
     Dosage: OVER 90 MINUTES
     Route: 042
     Dates: start: 20150223, end: 20150223
  17. VENTOLIN [Concomitant]
     Active Substance: ALBUTEROL SULFATE
     Indication: PRODUCT USED FOR UNKNOWN INDICATION
     Dosage: WHEN NECESSARY
     Route: 055
     Dates: start: 20150223
  18. ASPIRIN. [Concomitant]
     Active Substance: ASPIRIN
     Dosage: TAKE WITH/AFTER MEAL
     Dates: start: 20130327, end: 20150222
  19. MAXOLON [Concomitant]
     Active Substance: METOCLOPRAMIDE HYDROCHLORIDE
     Indication: PRODUCT USED FOR UNKNOWN INDICATION
     Dosage: 30 MINUTES BEFORE MEAL, AS NEEDED
     Route: 048
     Dates: start: 20150223
  20. HUMULIN NOS [Concomitant]
     Active Substance: INSULIN HUMAN
     Indication: TYPE 2 DIABETES MELLITUS
     Dosage: 30 UNITS IN MORNING, 10 UNITS IN AFTERNOON
     Route: 058
     Dates: start: 20150226, end: 20150226
  21. RIBAVIRIN. [Concomitant]
     Active Substance: RIBAVIRIN
     Indication: HEPATITIS C
     Dosage: 600MG IN THE MORNING; 400MG IN THE AFTERNOON
     Route: 048
     Dates: start: 20150217, end: 20150222

REACTIONS (17)
  - Dehydration [Recovered/Resolved]
  - Pulmonary congestion [Recovered/Resolved]
  - Acute kidney injury [Recovered/Resolved]
  - Cardiomegaly [Recovered/Resolved]
  - Abdominal pain upper [Recovered/Resolved]
  - Oesophagitis haemorrhagic [Recovered/Resolved]
  - Renal disorder [Recovered/Resolved]
  - Nausea [Recovered/Resolved]
  - Vomiting [Recovered/Resolved]
  - Blood urea increased [Recovered/Resolved]
  - Dyspnoea [Recovered/Resolved]
  - Erosive duodenitis [Recovered/Resolved]
  - Blood creatinine increased [Recovered/Resolved]
  - Pleural effusion [Recovered/Resolved]
  - Gastritis [Recovered/Resolved]
  - Hyperbilirubinaemia [Recovered/Resolved]
  - Haematemesis [Recovered/Resolved]

NARRATIVE: CASE EVENT DATE: 20150217
